FAERS Safety Report 5143828-5 (Version None)
Quarter: 2006Q4

REPORT INFORMATION
  Report Type: 
  Country: None (occurrence: None)
  Receive Date: 20061102
  Receipt Date: 20061102
  Transmission Date: 20070319
  Serious: Yes (Death)
  Sender: FDA-Public Use
  Company Number: None

PATIENT
  Sex: Female

DRUGS (9)
  1. REVLIMID [Suspect]
     Indication: MULTIPLE MYELOMA
     Dosage: 5MG DAILY PO
     Route: 048
     Dates: start: 20060921, end: 20061009
  2. ACETAMINOPHEN [Concomitant]
  3. LORAZEPAM [Concomitant]
  4. MORPHINE [Concomitant]
  5. METOCLOPRAMIDE [Concomitant]
  6. LOPERAMIDE [Concomitant]
  7. DOLASETRON [Concomitant]
  8. DIPHENHYDRAMINE HCL [Concomitant]
  9. CHLORPROMAZINE [Concomitant]

REACTIONS (14)
  - ABDOMINAL PAIN [None]
  - AUTOLOGOUS BONE MARROW TRANSPLANTATION THERAPY [None]
  - BLOOD BICARBONATE DECREASED [None]
  - BLOOD CALCIUM DECREASED [None]
  - BLOOD CREATINE PHOSPHOKINASE INCREASED [None]
  - BLOOD CREATININE INCREASED [None]
  - BLOOD PHOSPHORUS INCREASED [None]
  - DEPRESSED LEVEL OF CONSCIOUSNESS [None]
  - DIARRHOEA [None]
  - DYSPNOEA [None]
  - ELECTROCARDIOGRAM T WAVE AMPLITUDE DECREASED [None]
  - ELECTROCARDIOGRAM T WAVE INVERSION [None]
  - PANCYTOPENIA [None]
  - SINUS TACHYCARDIA [None]
